FAERS Safety Report 24950654 (Version 1)
Quarter: 2025Q1

REPORT INFORMATION
  Report Type: Spontaneous
  Country: US (occurrence: US)
  Receive Date: 20250210
  Receipt Date: 20250210
  Transmission Date: 20250409
  Serious: Yes (Hospitalization)
  Sender: AMGEN
  Company Number: US-AMGEN-USASP2025023420

PATIENT
  Age: 85 Year
  Sex: Male

DRUGS (1)
  1. CINACALCET HYDROCHLORIDE [Suspect]
     Active Substance: CINACALCET HYDROCHLORIDE
     Indication: Hypercalcaemia
     Route: 065

REACTIONS (8)
  - Quality of life decreased [Unknown]
  - Agitation [Unknown]
  - Aggression [Unknown]
  - General physical health deterioration [Unknown]
  - Blood parathyroid hormone abnormal [Unknown]
  - Blood calcium abnormal [Unknown]
  - Therapy non-responder [Unknown]
  - Hospice care [Unknown]
